FAERS Safety Report 18253336 (Version 2)
Quarter: 2021Q2

REPORT INFORMATION
  Report Type: Spontaneous
  Country: US (occurrence: US)
  Receive Date: 20200910
  Receipt Date: 20210610
  Transmission Date: 20210717
  Serious: Yes (Hospitalization, Other)
  Sender: FDA-Public Use
  Company Number: US-TEVA-2020-US-1827062

PATIENT
  Age: 66 Year
  Sex: Male
  Weight: 79.91 kg

DRUGS (38)
  1. HYDRALAZINE [Concomitant]
     Active Substance: HYDRALAZINE HYDROCHLORIDE
     Indication: HYPERTENSION
     Dosage: 25MG 2 PER DAY
     Route: 065
     Dates: start: 20130220, end: 20131124
  2. METFORMIN HCL [Concomitant]
     Active Substance: METFORMIN HYDROCHLORIDE
     Indication: TYPE 2 DIABETES MELLITUS
     Dosage: 1700 MILLIGRAM DAILY;
     Route: 065
     Dates: start: 20160209, end: 20170325
  3. METFORMIN HCL [Concomitant]
     Active Substance: METFORMIN HYDROCHLORIDE
     Dosage: 1700 MILLIGRAM DAILY;
     Route: 065
     Dates: start: 20160630, end: 20171002
  4. SYMBICORT [Concomitant]
     Active Substance: BUDESONIDE\FORMOTEROL FUMARATE DIHYDRATE
     Indication: CHRONIC OBSTRUCTIVE PULMONARY DISEASE
  5. VALSARTAN W/HYDROCHLOROTHIAZIDE SOLCO [Suspect]
     Active Substance: HYDROCHLOROTHIAZIDE\VALSARTAN
     Indication: HYPERTENSION
     Dosage: STRENGTH: 320/25 MG
     Route: 048
  6. AMLODIPINE BESILATE [Concomitant]
     Active Substance: AMLODIPINE BESYLATE
     Dosage: 10 MILLIGRAM DAILY;
     Route: 065
     Dates: start: 20190110, end: 20200113
  7. SYMBICORT [Concomitant]
     Active Substance: BUDESONIDE\FORMOTEROL FUMARATE DIHYDRATE
     Indication: ASTHMA
     Dosage: 80/4.5 MG, 2 PUFFS 2 TIMES A DAY
     Route: 065
     Dates: start: 20180521, end: 20190920
  8. FLUTICASONE PROPIONATE. [Concomitant]
     Active Substance: FLUTICASONE PROPIONATE
     Indication: ASTHMA
     Dosage: 50MCG
     Route: 065
     Dates: start: 20140116, end: 20140901
  9. ATORVASTATIN [Concomitant]
     Active Substance: ATORVASTATIN
     Indication: HYPERLIPIDAEMIA
     Dosage: 50 MG, 1 TAB PER DAY; 80 MG, 1 TAB PER DAY
     Route: 065
     Dates: start: 20160812, end: 20190505
  10. CEFUROXIME AXETIL. [Concomitant]
     Active Substance: CEFUROXIME AXETIL
     Dosage: 500MG
     Route: 065
     Dates: start: 20161109, end: 20170220
  11. CIALIS [Concomitant]
     Active Substance: TADALAFIL
     Indication: PROSTATOMEGALY
     Dosage: 10MG, 1 PER DAY; 5MG 1 TAB PER DAY
     Route: 065
  12. DOXAZOSIN MESYLATE. [Concomitant]
     Active Substance: DOXAZOSIN MESYLATE
     Indication: HYPERTENSION
  13. DIOVAN HCT [Concomitant]
     Active Substance: HYDROCHLOROTHIAZIDE\VALSARTAN
     Indication: HYPERTENSION
     Dosage: 160/25MG 1 PER DAY; ; 320?12.5MG, 1 PER DAY; 320?25MG, 1 PER DAY
     Route: 065
     Dates: start: 20120407, end: 20130814
  14. FLUTICASONE PROPIONATE. [Concomitant]
     Active Substance: FLUTICASONE PROPIONATE
     Indication: CHRONIC OBSTRUCTIVE PULMONARY DISEASE
  15. CARVEDILOL. [Concomitant]
     Active Substance: CARVEDILOL
     Indication: HYPERTENSION
     Dosage: 6.25 MG, 2 TAB PER DAY; 25 MG, 2 TAB PER DAY
     Route: 065
     Dates: start: 20160912, end: 20170325
  16. OLMESARTAN MEDOXOMIL. [Concomitant]
     Active Substance: OLMESARTAN MEDOXOMIL
     Indication: HYPERTENSION
     Route: 065
     Dates: start: 20180717, end: 20190312
  17. VENTOLIN [Concomitant]
     Active Substance: ALBUTEROL SULFATE
     Indication: BRONCHOSPASM
     Dosage: 2PUFFS 2 TIMES A DAY
     Route: 065
     Dates: start: 20180507, end: 20180818
  18. MONTELUKAST [Concomitant]
     Active Substance: MONTELUKAST SODIUM
     Indication: HYPERSENSITIVITY
     Dosage: 10 MILLIGRAM DAILY;
     Route: 065
     Dates: start: 20180507, end: 20190312
  19. GABAPENTIN. [Concomitant]
     Active Substance: GABAPENTIN
     Indication: NEUROPATHY PERIPHERAL
     Dosage: 400 MG, 3 TIMES A DAY, 600 MG, 2 TIMES A DAY
     Route: 065
     Dates: start: 20190610, end: 20200120
  20. CRESTOR [Concomitant]
     Active Substance: ROSUVASTATIN CALCIUM
     Indication: HYPERLIPIDAEMIA
     Dosage: 10MG, 20MG 1 PER DAY
     Route: 065
     Dates: start: 20100505, end: 20150220
  21. TAMSULOSIN HCL [Concomitant]
     Active Substance: TAMSULOSIN HYDROCHLORIDE
     Indication: PROSTATOMEGALY
     Route: 065
     Dates: start: 20100812, end: 20161010
  22. CARVEDILOL. [Concomitant]
     Active Substance: CARVEDILOL
     Dosage: 6.25 MG, 2 TAB PER DAY; 25 MG, 2 TAB PER DAY
     Route: 065
     Dates: start: 20120411, end: 20180312
  23. ALPRAZOLAM. [Concomitant]
     Active Substance: ALPRAZOLAM
     Indication: PANIC DISORDER
     Dosage: .25 MILLIGRAM DAILY;
     Route: 065
     Dates: start: 20180906, end: 20181127
  24. PANTOPRAZOLE [Concomitant]
     Active Substance: PANTOPRAZOLE
     Indication: GASTROOESOPHAGEAL REFLUX DISEASE
     Route: 065
     Dates: start: 20180321, end: 20190401
  25. VALSARTAN W/HYDROCHLOROTHIAZIDE HUAHAI [Suspect]
     Active Substance: HYDROCHLOROTHIAZIDE\VALSARTAN
     Indication: HYPERTENSION
     Dosage: STRENGTH: 320/25 MG
     Route: 048
     Dates: start: 20180321, end: 20180624
  26. VALSARTAN W/HYDROCHLOROTHIAZIDE MACLEODS [Suspect]
     Active Substance: HYDROCHLOROTHIAZIDE\VALSARTAN
     Indication: HYPERTENSION
     Dosage: STRENGTH: 320/25 MG
     Route: 048
  27. MONTELUKAST [Concomitant]
     Active Substance: MONTELUKAST SODIUM
     Indication: ASTHMA
  28. VALSARTAN W/HYDROCHLOROTHIAZIDE TEVA [Suspect]
     Active Substance: HYDROCHLOROTHIAZIDE\VALSARTAN
     Indication: HYPERTENSION
     Dosage: STRENGTH: 320/25MG
     Route: 048
     Dates: start: 20130808, end: 20170326
  29. VALSARTAN SOLCO [Suspect]
     Active Substance: VALSARTAN
     Indication: HYPERTENSION
     Route: 048
  30. TAMSULOSIN HCL [Concomitant]
     Active Substance: TAMSULOSIN HYDROCHLORIDE
     Route: 065
     Dates: start: 20171002, end: 20180522
  31. OMEPRAZOLE. [Concomitant]
     Active Substance: OMEPRAZOLE
     Indication: DYSPEPSIA
     Dosage: 40 MILLIGRAM DAILY;
     Route: 065
     Dates: start: 20140110, end: 20170203
  32. HYDROCHLOROTHIAZIDE. [Concomitant]
     Active Substance: HYDROCHLOROTHIAZIDE
     Indication: HYPERTENSION
     Dosage: 12.5 MILLIGRAM DAILY;
     Route: 065
     Dates: start: 20190103, end: 20200113
  33. TRAMADOL. [Concomitant]
     Active Substance: TRAMADOL
     Indication: PAIN MANAGEMENT
     Route: 065
     Dates: start: 20170103, end: 20191227
  34. DOXAZOSIN MESYLATE. [Concomitant]
     Active Substance: DOXAZOSIN MESYLATE
     Indication: PROSTATOMEGALY
     Dosage: 1MG, 2 PER DAY; 4MG, 1 PER DAY
     Route: 065
  35. AMLODIPINE BESILATE [Concomitant]
     Active Substance: AMLODIPINE BESYLATE
     Indication: HYPERTENSION
     Dosage: 5 MILLIGRAM DAILY;
     Route: 065
     Dates: start: 20140116, end: 20160828
  36. ATORVASTATIN [Concomitant]
     Active Substance: ATORVASTATIN
     Indication: HYPERTENSION
     Dosage: 40 MILLIGRAM DAILY;
     Route: 065
     Dates: start: 20160209, end: 20170325
  37. ASPIRIN. [Concomitant]
     Active Substance: ASPIRIN
     Dosage: 1 OR 2 TAB PER DAY
     Route: 065
     Dates: start: 20160630, end: 20180818
  38. POTASSIUM CL [Concomitant]
     Active Substance: POTASSIUM CHLORIDE
     Indication: BLOOD POTASSIUM DECREASED
     Route: 065
     Dates: start: 20181004, end: 20190924

REACTIONS (4)
  - Prostate cancer [Not Recovered/Not Resolved]
  - Metastasis [Not Recovered/Not Resolved]
  - Gastric cancer [Not Recovered/Not Resolved]
  - Weight decreased [Not Recovered/Not Resolved]

NARRATIVE: CASE EVENT DATE: 20180808
